FAERS Safety Report 22683769 (Version 8)
Quarter: 2024Q4

REPORT INFORMATION
  Report Type: Report from Study
  Country: US (occurrence: US)
  Receive Date: 20230708
  Receipt Date: 20241125
  Transmission Date: 20250114
  Serious: Yes (Hospitalization)
  Sender: NOVARTIS
  Company Number: US-002147023-NVSC2023US150424

PATIENT
  Age: 41 Year
  Sex: Female

DRUGS (4)
  1. KESIMPTA [Suspect]
     Active Substance: OFATUMUMAB
     Indication: Relapsing multiple sclerosis
     Dosage: 20 MG, QW
     Route: 058
     Dates: start: 20230505
  2. KESIMPTA [Suspect]
     Active Substance: OFATUMUMAB
     Dosage: 20 MG, QW
     Route: 058
     Dates: start: 20230512
  3. KESIMPTA [Suspect]
     Active Substance: OFATUMUMAB
     Dosage: 20 MG, QW
     Route: 058
     Dates: start: 20230518
  4. KESIMPTA [Suspect]
     Active Substance: OFATUMUMAB
     Dosage: 20 MG, QMO
     Route: 058
     Dates: start: 20230630

REACTIONS (13)
  - Panic attack [Unknown]
  - Chest pain [Unknown]
  - Vomiting [Unknown]
  - Feeding disorder [Unknown]
  - Multiple sclerosis relapse [Unknown]
  - Back pain [Unknown]
  - Pain in extremity [Unknown]
  - Muscle spasms [Unknown]
  - Product sterility issue [Unknown]
  - Nasopharyngitis [Unknown]
  - Fatigue [Unknown]
  - Yawning [Unknown]
  - Inappropriate schedule of product administration [Unknown]

NARRATIVE: CASE EVENT DATE: 20230630
